FAERS Safety Report 11568866 (Version 1)
Quarter: 2015Q3

REPORT INFORMATION
  Report Type: Spontaneous
  Country: US (occurrence: None)
  Receive Date: 20150928
  Receipt Date: 20150928
  Transmission Date: 20151125
  Serious: Yes (Life-Threatening, Hospitalization)
  Sender: FDA-Public Use
  Company Number: None

PATIENT
  Age: 45 Year
  Sex: Female
  Weight: 56.7 kg

DRUGS (6)
  1. VITAMIN B [Concomitant]
     Active Substance: VITAMIN B
  2. GENERIC CYMBALTA 20 MG/DAY [Suspect]
     Active Substance: DULOXETINE HYDROCHLORIDE
     Indication: FIBROMYALGIA
     Route: 048
     Dates: start: 20150811, end: 20150927
  3. GLUCOSAMINE [Concomitant]
     Active Substance: GLUCOSAMINE
  4. GENERIC CYMBALTA 20 MG/DAY [Suspect]
     Active Substance: DULOXETINE HYDROCHLORIDE
     Indication: PALPITATIONS
     Route: 048
     Dates: start: 20150811, end: 20150927
  5. SPIRONOLACTONE. [Concomitant]
     Active Substance: SPIRONOLACTONE
  6. GENERIC CYMBALTA 20 MG/DAY [Suspect]
     Active Substance: DULOXETINE HYDROCHLORIDE
     Indication: SUPRAVENTRICULAR TACHYCARDIA
     Route: 048
     Dates: start: 20150811, end: 20150927

REACTIONS (3)
  - Product substitution issue [None]
  - Quality of life decreased [None]
  - Impaired work ability [None]

NARRATIVE: CASE EVENT DATE: 20150927
